FAERS Safety Report 5422468-4 (Version None)
Quarter: 2007Q3

REPORT INFORMATION
  Report Type: 
  Country: None (occurrence: None)
  Receive Date: 20070822
  Receipt Date: 20070810
  Transmission Date: 20080115
  Serious: Yes (Other)
  Sender: FDA-Public Use
  Company Number: JP-SANOFI-SYNTHELABO-A01200704853

PATIENT
  Sex: Female
  Weight: 50 kg

DRUGS (10)
  1. FERRUM [Concomitant]
     Dosage: UNK
     Route: 048
  2. LANDEL [Concomitant]
     Dosage: UNK
     Route: 065
  3. METOPROLOL TARTRATE [Concomitant]
     Indication: ANGINA PECTORIS
     Route: 048
     Dates: start: 20070131
  4. LANSOPRAZOLE [Concomitant]
     Indication: REFLUX OESOPHAGITIS
     Dosage: UNK
     Route: 048
     Dates: start: 20070131
  5. SIGMART [Concomitant]
     Indication: ANGINA PECTORIS
     Dosage: UNK
     Route: 048
     Dates: start: 20070131
  6. ASPIRIN [Concomitant]
     Indication: ANGINA PECTORIS
     Route: 048
     Dates: start: 20070131
  7. LIPITOR [Suspect]
     Dosage: 5 MG
     Route: 048
     Dates: start: 20070201, end: 20070322
  8. TICLOPIDINE HCL [Suspect]
     Dosage: 200 MG
     Route: 048
     Dates: start: 20070131, end: 20070308
  9. PLAVIX [Suspect]
     Indication: PERCUTANEOUS CORONARY INTERVENTION
     Route: 048
     Dates: start: 20070309, end: 20070322
  10. PLAVIX [Suspect]
     Dosage: 37.5 MG
     Route: 048
     Dates: start: 20070323, end: 20070417

REACTIONS (2)
  - CHOLESTASIS [None]
  - CONDITION AGGRAVATED [None]
